FAERS Safety Report 10932422 (Version 1)
Quarter: 2015Q1

REPORT INFORMATION
  Report Type: Spontaneous
  Country: US (occurrence: None)
  Receive Date: 20150319
  Receipt Date: 20150319
  Transmission Date: 20150721
  Serious: Yes (Disabling)
  Sender: FDA-Public Use
  Company Number: None

PATIENT
  Age: 49 Year
  Sex: Female
  Weight: 71.67 kg

DRUGS (4)
  1. VITAMIN D [Concomitant]
     Active Substance: CHOLECALCIFEROL
  2. RISPERDAL CONSTA [Suspect]
     Active Substance: RISPERIDONE
     Indication: SCHIZOAFFECTIVE DISORDER
     Dosage: 50 MG. INJECTION EVERY OTHER WEEK IN THE BUTTOX
     Dates: start: 20080331, end: 20150311
  3. SERTRALINE [Concomitant]
     Active Substance: SERTRALINE HYDROCHLORIDE
  4. LORAZAPAN [Concomitant]

REACTIONS (5)
  - Injection site pain [None]
  - Injection site rash [None]
  - Malaise [None]
  - Injection site ulcer [None]
  - Vomiting [None]

NARRATIVE: CASE EVENT DATE: 20150311
